FAERS Safety Report 8924833 (Version 1)
Quarter: 2012Q4

REPORT INFORMATION
  Report Type: 
  Country: FR (occurrence: FR)
  Receive Date: 20121126
  Receipt Date: 20121126
  Transmission Date: 20130627
  Serious: Yes (Hospitalization)
  Sender: FDA-Public Use
  Company Number: FR-BAUSCH-BL-2012-001846

PATIENT
  Age: 49 Year
  Sex: Female

DRUGS (5)
  1. IPRATROPIUM BROMIDE [Suspect]
     Indication: RESPIRATORY DISTRESS
     Dosage: 0.5 mg/2 mL; Daily; Inhalation
  2. TERBUTALINE [Suspect]
     Indication: RESPIRATORY DISTRESS
     Dosage: 0.5 mg/2 mL; Daily; Inhalation
  3. OXYGEN [Concomitant]
     Indication: RESPIRATORY DISTRESS
     Dosage: 3 L/min; Inhalation
  4. METHYLPREDNISOLONE [Concomitant]
     Indication: RESPIRATORY DISTRESS
     Dosage: 120 mg; Intravenous
  5. SALBUTAMOL [Concomitant]
     Indication: ASTHMA

REACTIONS (1)
  - Lactic acidosis [Recovered/Resolved]
